FAERS Safety Report 9506761 (Version 1)
Quarter: 2013Q3

REPORT INFORMATION
  Report Type: Spontaneous
  Country: US (occurrence: US)
  Receive Date: 20130909
  Receipt Date: 20130909
  Transmission Date: 20140515
  Serious: No
  Sender: FDA-Public Use
  Company Number: US-009507513-1309USA001757

PATIENT
  Age: 16 Year
  Sex: Female
  Weight: 56.69 kg

DRUGS (1)
  1. NEXPLANON [Suspect]
     Indication: CONTRACEPTION
     Dosage: IN THE ARM
     Route: 059
     Dates: start: 20121018

REACTIONS (5)
  - Vomiting in pregnancy [Unknown]
  - Weight increased [Unknown]
  - Unintended pregnancy [Unknown]
  - Asthenia [Unknown]
  - Fatigue [Unknown]
